FAERS Safety Report 21595756 (Version 4)
Quarter: 2023Q1

REPORT INFORMATION
  Report Type: Report from Study
  Country: IN (occurrence: IN)
  Receive Date: 20221115
  Receipt Date: 20230103
  Transmission Date: 20230417
  Serious: Yes (Other)
  Sender: FDA-Public Use
  Company Number: IN-ASTELLAS-2022US040234

PATIENT
  Age: 69 Year
  Sex: Male

DRUGS (4)
  1. TACROLIMUS [Suspect]
     Active Substance: TACROLIMUS
     Indication: Prophylaxis against transplant rejection
     Dosage: (1 MG MORNING AND 0.5 MG EVENING), TWICE DAILY
     Route: 048
     Dates: start: 20220222
  2. TACROLIMUS [Suspect]
     Active Substance: TACROLIMUS
     Dosage: 1 MG, TWICE DAILY (PROGRAF 1MG IN MORNING AND PROGRAF 1MG IN EVENING DAILY)
     Route: 048
  3. TACROLIMUS [Suspect]
     Active Substance: TACROLIMUS
     Dosage: 1.5MG IN MORNING, 1.0 MG IN EVENING
     Route: 048
  4. TACROLIMUS [Suspect]
     Active Substance: TACROLIMUS
     Route: 048

REACTIONS (4)
  - Immunosuppressant drug level decreased [Not Recovered/Not Resolved]
  - Renal failure [Unknown]
  - Immunosuppressant drug level increased [Not Recovered/Not Resolved]
  - Drug ineffective [Not Recovered/Not Resolved]

NARRATIVE: CASE EVENT DATE: 20221105
